FAERS Safety Report 8572123-7 (Version None)
Quarter: 2012Q3

REPORT INFORMATION
  Report Type: 
  Country: None (occurrence: None)
  Receive Date: 20120806
  Receipt Date: 20120801
  Transmission Date: 20120928
  Serious: Yes (Other)
  Sender: FDA-Public Use
  Company Number: PHHY2012FR059015

PATIENT
  Sex: Female
  Weight: 60 kg

DRUGS (5)
  1. BISOPROLOL FUMARATE [Concomitant]
     Indication: MYOCARDIAL INFARCTION
     Dosage: 25 MG, QD
     Dates: start: 20090501
  2. ASPIRIN [Concomitant]
     Indication: MYOCARDIAL INFARCTION
     Dosage: 75 MG, QD
     Route: 048
     Dates: start: 20090501
  3. ESOMEPRAZOLE [Concomitant]
     Indication: MYOCARDIAL INFARCTION
     Dosage: 20 MG, QD
     Route: 048
     Dates: start: 20090501
  4. RASILEZ [Suspect]
     Indication: HYPERTENSION
     Dosage: 300 MG, QD
     Route: 048
     Dates: start: 20100709
  5. ATORVASTATIN [Concomitant]
     Indication: MYOCARDIAL INFARCTION
     Dosage: 20 MG, QD
     Route: 048
     Dates: start: 20090501

REACTIONS (4)
  - LUNG DISORDER [None]
  - COUGH [None]
  - LUNG INFECTION [None]
  - FOREIGN BODY [None]
